FAERS Safety Report 8902268 (Version 1)
Quarter: 2012Q4

REPORT INFORMATION
  Report Type: 
  Country: JP (occurrence: JP)
  Receive Date: 20121112
  Receipt Date: 20121112
  Transmission Date: 20130627
  Serious: Yes (Death, Hospitalization, Other)
  Sender: FDA-Public Use
  Company Number: JP-ROCHE-1143448

PATIENT
  Age: 68 Year
  Sex: Male
  Weight: 63 kg

DRUGS (9)
  1. AVASTIN [Suspect]
     Indication: LUNG ADENOCARCINOMA METASTATIC
     Route: 041
     Dates: start: 20120829, end: 20120829
  2. LOXONIN [Suspect]
     Indication: PAIN
     Route: 048
     Dates: start: 20120828, end: 20120929
  3. CELECOX [Suspect]
     Indication: BACK PAIN
     Route: 048
     Dates: start: 20120828, end: 20120929
  4. TS-1 [Suspect]
     Indication: LUNG ADENOCARCINOMA METASTATIC
     Route: 048
     Dates: start: 20120829, end: 20120911
  5. AMARYL [Concomitant]
     Indication: DIABETES MELLITUS
     Route: 048
     Dates: end: 20120929
  6. AMLODIN [Concomitant]
     Indication: HYPERTENSION
     Route: 048
     Dates: end: 20120907
  7. TELMISARTAN [Concomitant]
     Indication: HYPERTENSION
     Route: 048
     Dates: start: 20120907, end: 20120929
  8. ITRIZOLE [Concomitant]
     Indication: ORAL CANDIDIASIS
     Route: 048
     Dates: start: 20120919, end: 20120924
  9. PANTOSIN [Concomitant]
     Indication: CONSTIPATION
     Route: 048
     Dates: start: 20120926, end: 20120929

REACTIONS (10)
  - Gastrointestinal haemorrhage [Fatal]
  - Stomatitis [Recovering/Resolving]
  - Neutrophil count decreased [Recovered/Resolved]
  - Platelet count decreased [Recovered/Resolved]
  - Anaemia [Not Recovered/Not Resolved]
  - Faeces discoloured [Unknown]
  - Melaena [Not Recovered/Not Resolved]
  - Vomiting [Unknown]
  - Gastric ulcer [Unknown]
  - Haemoglobin decreased [Unknown]
